FAERS Safety Report 7761893-3 (Version None)
Quarter: 2011Q3

REPORT INFORMATION
  Report Type: 
  Country: None (occurrence: None)
  Receive Date: 20110920
  Receipt Date: 20110916
  Transmission Date: 20111222
  Serious: Yes (Death)
  Sender: FDA-Public Use
  Company Number: US-SANOFI-AVENTIS-2011SA060725

PATIENT
  Age: 67 Year
  Sex: Female

DRUGS (8)
  1. BLINDED THERAPY [Suspect]
     Route: 048
     Dates: start: 20110727
  2. LEUCOVORIN CALCIUM [Suspect]
     Route: 042
     Dates: start: 20110727
  3. FLUOROURACIL [Suspect]
     Dosage: ROUTE: INTRAVENOUS PUSH
     Dates: start: 20110727
  4. FLUOROURACIL [Suspect]
     Dosage: OVER 46-48 HOURS ON DAY 1 AND DAY 2
     Route: 042
     Dates: start: 20110727
  5. OXALIPLATIN [Suspect]
     Route: 042
     Dates: start: 20110810
  6. OXALIPLATIN [Suspect]
     Route: 042
     Dates: start: 20110727
  7. BLINDED THERAPY [Suspect]
     Route: 048
     Dates: start: 20110810
  8. LEUCOVORIN CALCIUM [Suspect]
     Route: 042
     Dates: start: 20110810

REACTIONS (1)
  - GASTRIC HAEMORRHAGE [None]
